FAERS Safety Report 8234891-3 (Version None)
Quarter: 2012Q1

REPORT INFORMATION
  Report Type: 
  Country: None (occurrence: None)
  Receive Date: 20120322
  Receipt Date: 20120312
  Transmission Date: 20120608
  Serious: Yes (Hospitalization)
  Sender: FDA-Public Use
  Company Number: JP-2012-14121

PATIENT
  Age: 67 Year
  Sex: Male

DRUGS (2)
  1. PLETAL [Suspect]
     Dosage: 200 MG MILLIGRAM(S), DAILY DOSE, ORAL
     Route: 048
  2. CLOPIDOGREL BISULFATE [Concomitant]

REACTIONS (8)
  - BLOOD PRESSURE FLUCTUATION [None]
  - HAEMODIALYSIS [None]
  - SUBDURAL HAEMATOMA [None]
  - CONTUSION [None]
  - FALL [None]
  - FEELING ABNORMAL [None]
  - COMA [None]
  - PUPILS UNEQUAL [None]
